FAERS Safety Report 24411117 (Version 1)
Quarter: 2024Q4

REPORT INFORMATION
  Report Type: Spontaneous
  Country: US (occurrence: US)
  Receive Date: 20241008
  Receipt Date: 20241008
  Transmission Date: 20250115
  Serious: Yes (Hospitalization)
  Sender: BAUSCH AND LOMB
  Company Number: US-BAUSCHBL-2024BNL034159

PATIENT
  Age: 82 Year
  Sex: Female

DRUGS (7)
  1. MAGNESIUM GLUCONATE [Suspect]
     Active Substance: MAGNESIUM GLUCONATE
     Indication: Product used for unknown indication
     Route: 065
  2. COLLAGEN [Suspect]
     Active Substance: COLLAGEN
     Indication: Product used for unknown indication
     Route: 065
  3. BIOZYME [Suspect]
     Active Substance: CHYMOTRYPSIN\NEOMYCIN PALMITATE\TRYPSIN
     Indication: Product used for unknown indication
     Route: 065
  4. DIETARY SUPPLEMENT\HERBALS [Suspect]
     Active Substance: DIETARY SUPPLEMENT\HERBALS
     Indication: Product used for unknown indication
     Route: 065
  5. RUSCUS ACULEATUS ROOT [Suspect]
     Active Substance: RUSCUS ACULEATUS ROOT
     Indication: Product used for unknown indication
     Route: 065
  6. VINPOCETINE [Suspect]
     Active Substance: VINPOCETINE
     Indication: Product used for unknown indication
     Route: 065
  7. SAFFRON [Suspect]
     Active Substance: SAFFRON
     Indication: Product used for unknown indication
     Route: 065

REACTIONS (1)
  - Arthritis [Unknown]

NARRATIVE: CASE EVENT DATE: 20190224
